FAERS Safety Report 6720536-8 (Version None)
Quarter: 2010Q2

REPORT INFORMATION
  Report Type: 
  Country: None (occurrence: None)
  Receive Date: 20100511
  Receipt Date: 20100511
  Transmission Date: 20101027
  Serious: Yes (Other)
  Sender: FDA-Public Use
  Company Number: None

PATIENT
  Age: 69 Year
  Sex: Female
  Weight: 86.4 kg

DRUGS (1)
  1. BRIMONIDINE TARTRATE SOLUTION 0.2% BAUSCH+LOMB [Suspect]
     Indication: GLAUCOMA
     Dosage: 1 DROP IN EACH EYE 3X/DAY OPH.DROPS
     Route: 047
     Dates: start: 20091201, end: 20100420

REACTIONS (7)
  - EYE PRURITUS [None]
  - EYELID PTOSIS [None]
  - HEADACHE [None]
  - INTRAOCULAR PRESSURE INCREASED [None]
  - NEURITIS [None]
  - PRODUCT SUBSTITUTION ISSUE [None]
  - VISION BLURRED [None]
